FAERS Safety Report 13412096 (Version 2)
Quarter: 2017Q4

REPORT INFORMATION
  Report Type: Spontaneous
  Country: US (occurrence: US)
  Receive Date: 20170406
  Receipt Date: 20171123
  Transmission Date: 20180320
  Serious: No
  Sender: FDA-Public Use
  Company Number: US-JNJFOC-20170316579

PATIENT
  Sex: Male

DRUGS (4)
  1. INVEGA [Suspect]
     Active Substance: PALIPERIDONE
     Indication: SCHIZOPHRENIA
     Route: 048
     Dates: start: 20131008
  2. RISPERIDONE. [Suspect]
     Active Substance: RISPERIDONE
     Indication: SCHIZOPHRENIA
     Dosage: DOSAGE VARYING FROM 2 MG AND 4 MG
     Route: 048
     Dates: start: 20080922, end: 20081122
  3. RISPERDAL [Suspect]
     Active Substance: RISPERIDONE
     Indication: SCHIZOPHRENIA
     Route: 048
     Dates: start: 200602, end: 2006
  4. RISPERDAL CONSTA [Suspect]
     Active Substance: RISPERIDONE
     Indication: SCHIZOPHRENIA
     Dosage: DOSAGE VARYING FROM 25 MG AND 37.5 MG
     Route: 030
     Dates: start: 20060614, end: 200808

REACTIONS (7)
  - Muscle spasms [Unknown]
  - Thinking abnormal [Unknown]
  - Disturbance in attention [Unknown]
  - Somnolence [Unknown]
  - Asthenia [Unknown]
  - Gynaecomastia [Unknown]
  - Emotional disorder [Unknown]
